FAERS Safety Report 12217989 (Version 6)
Quarter: 2016Q3

REPORT INFORMATION
  Report Type: Spontaneous
  Country: US (occurrence: US)
  Receive Date: 20160329
  Receipt Date: 20160817
  Transmission Date: 20161109
  Serious: No
  Sender: FDA-Public Use
  Company Number: US-ACTELION PHARMACEUTICALS US, INC.-A-NJ2016-133183

PATIENT
  Age: 53 Year
  Sex: Female

DRUGS (2)
  1. DICLOFENAC SODIUM. [Suspect]
     Active Substance: DICLOFENAC SODIUM
     Indication: PRODUCT USED FOR UNKNOWN INDICATION
     Route: 065
  2. OPSUMIT [Suspect]
     Active Substance: MACITENTAN
     Indication: PULMONARY ARTERIAL HYPERTENSION
     Dosage: 10 MG, QD
     Route: 048
     Dates: start: 20160218

REACTIONS (22)
  - Dyspnoea [Unknown]
  - Fluid retention [Unknown]
  - Chest discomfort [Unknown]
  - Dizziness [Unknown]
  - Road traffic accident [Unknown]
  - Chest pain [Unknown]
  - Rib fracture [Unknown]
  - Pulmonary arterial hypertension [Unknown]
  - Memory impairment [Unknown]
  - Therapeutic response decreased [Unknown]
  - Condition aggravated [Unknown]
  - Confusional state [Unknown]
  - Pain [Unknown]
  - Deformity thorax [Unknown]
  - Arthralgia [Unknown]
  - Hypoaesthesia [Unknown]
  - Syncope [Unknown]
  - Unevaluable event [Unknown]
  - Drug dose omission [Unknown]
  - Peripheral coldness [Unknown]
  - Stress [Unknown]
  - Therapy non-responder [Unknown]

NARRATIVE: CASE EVENT DATE: 20160528
